FAERS Safety Report 5248139-5 (Version None)
Quarter: 2007Q1

REPORT INFORMATION
  Report Type: 
  Country: None (occurrence: None)
  Receive Date: 20070227
  Receipt Date: 20060227
  Transmission Date: 20070707
  Serious: No
  Sender: FDA-Public Use
  Company Number: US-BRISTOL-MYERS SQUIBB COMPANY-13297239

PATIENT
  Age: 83 Year
  Sex: Male

DRUGS (5)
  1. GLUCOPHAGE [Suspect]
     Indication: DIABETES MELLITUS MANAGEMENT
     Route: 048
     Dates: start: 20040101
  2. GLUCOTROL [Concomitant]
     Dates: start: 20040101
  3. NORVASC [Concomitant]
     Dates: start: 20040101
  4. ATACAND [Concomitant]
     Dates: start: 20040101
  5. ACTOS [Concomitant]
     Dates: start: 20040101

REACTIONS (1)
  - NAUSEA [None]
